FAERS Safety Report 21029248 (Version 4)
Quarter: 2022Q3

REPORT INFORMATION
  Report Type: Report from Study
  Country: FR (occurrence: FR)
  Receive Date: 20220630
  Receipt Date: 20220816
  Transmission Date: 20221027
  Serious: Yes (Life-Threatening, Hospitalization, Other)
  Sender: FDA-Public Use
  Company Number: FR-TAKEDA-FR201820469

PATIENT
  Age: 73 Year
  Sex: Female
  Weight: 65.76 kg

DRUGS (30)
  1. TEDUGLUTIDE [Suspect]
     Active Substance: TEDUGLUTIDE
     Indication: Short-bowel syndrome
     Dosage: 3.3 MILLIGRAM, QD
     Route: 042
     Dates: start: 20160929
  2. TEDUGLUTIDE [Suspect]
     Active Substance: TEDUGLUTIDE
     Indication: Short-bowel syndrome
     Dosage: 3.3 MILLIGRAM, QD
     Route: 042
     Dates: start: 20160929
  3. TEDUGLUTIDE [Suspect]
     Active Substance: TEDUGLUTIDE
     Indication: Short-bowel syndrome
     Dosage: 3.3 MILLIGRAM, QD
     Route: 042
     Dates: start: 20160929
  4. TEDUGLUTIDE [Suspect]
     Active Substance: TEDUGLUTIDE
     Indication: Short-bowel syndrome
     Dosage: 3.3 MILLIGRAM, QD
     Route: 042
     Dates: start: 20160929
  5. VANCOMYCIN [Concomitant]
     Active Substance: VANCOMYCIN
     Indication: Antibiotic therapy
     Dosage: UNK
     Route: 058
     Dates: start: 201803
  6. MEROPENEM [Concomitant]
     Active Substance: MEROPENEM
     Indication: Antibiotic therapy
     Dosage: UNK
     Route: 058
     Dates: start: 201803
  7. NOREPINEPHRINE [Concomitant]
     Active Substance: NOREPINEPHRINE
     Indication: Vasopressive therapy
     Dosage: UNK
     Route: 042
     Dates: start: 20180205
  8. DEXTROSE [Concomitant]
     Active Substance: DEXTROSE
     Indication: Energy increased
     Dosage: 250 MILLILITER, QD
     Route: 042
     Dates: start: 201802
  9. KAYEXALATE [Concomitant]
     Active Substance: SODIUM POLYSTYRENE SULFONATE
     Indication: Hyperkalaemia
     Dosage: 2 UNK
     Route: 048
     Dates: start: 20170927, end: 20170927
  10. CHOLECALCIFEROL [Concomitant]
     Active Substance: CHOLECALCIFEROL
     Indication: Vitamin supplementation
     Dosage: 1000000 INTERNATIONAL UNIT
     Route: 048
     Dates: start: 201303
  11. VITAMIN B12 [Concomitant]
     Active Substance: CYANOCOBALAMIN
     Indication: Vitamin supplementation
     Dosage: 1000 MICROGRAM
     Route: 030
     Dates: start: 201303
  12. CODEINE PHOSPHATE [Concomitant]
     Active Substance: CODEINE PHOSPHATE
     Indication: Diarrhoea
     Dosage: 20 MILLIGRAM
     Route: 048
     Dates: start: 201303
  13. IMODIUM [Concomitant]
     Active Substance: LOPERAMIDE HYDROCHLORIDE
     Indication: Diarrhoea
     Dosage: 4 MILLIGRAM
     Route: 048
     Dates: start: 201303
  14. ESOMEPRAZOLE [Concomitant]
     Active Substance: ESOMEPRAZOLE
     Indication: Gastrooesophageal reflux prophylaxis
     Dosage: 40 MILLIGRAM, BID
     Route: 048
     Dates: start: 200905
  15. KARDEGIC [Concomitant]
     Active Substance: ASPIRIN DL-LYSINE
     Indication: Anticoagulant therapy
     Dosage: 75 MILLIGRAM, QD
     Route: 048
     Dates: start: 200905
  16. TAHOR [Concomitant]
     Active Substance: ATORVASTATIN CALCIUM
     Indication: Dyslipidaemia
     Dosage: 20 MILLIGRAM, QD
     Route: 048
     Dates: start: 1996
  17. RAMIPRIL [Concomitant]
     Active Substance: RAMIPRIL
     Indication: Blood pressure increased
     Dosage: 10 MILLIGRAM, QD
     Route: 048
     Dates: start: 201402
  18. PREGABALIN [Concomitant]
     Active Substance: PREGABALIN
     Indication: Pain
     Dosage: 200 MILLIGRAM, QID
     Route: 048
     Dates: start: 201306
  19. NAFRONYL [Concomitant]
     Active Substance: NAFRONYL
     Indication: Arterial disorder
     Dosage: 200 MILLIGRAM, TID
     Route: 048
     Dates: start: 2014
  20. CREON [Concomitant]
     Active Substance: PANCRELIPASE AMYLASE\PANCRELIPASE LIPASE\PANCRELIPASE PROTEASE
     Indication: Digestive enzyme abnormal
     Dosage: 75000 INTERNATIONAL UNIT, TID
     Route: 048
     Dates: start: 2015
  21. ASCORBIC ACID\FERROUS SULFATE [Concomitant]
     Active Substance: ASCORBIC ACID\FERROUS SULFATE
     Indication: Anaemia
     Dosage: 1 DOSAGE FORM, BID
     Route: 048
     Dates: start: 201607
  22. Meteospasmyl [Concomitant]
     Indication: Gastrointestinal disorder
     Dosage: 1 DOSAGE FORM, TID
     Route: 048
     Dates: start: 201607
  23. LERCANIDIPINE [Concomitant]
     Active Substance: LERCANIDIPINE
     Indication: Blood pressure increased
     Dosage: 10 MILLIGRAM, QD
     Route: 048
     Dates: start: 201601
  24. RILMENIDINE PHOSPHATE [Concomitant]
     Active Substance: RILMENIDINE PHOSPHATE
     Indication: Blood pressure increased
     Dosage: 1 MILLIGRAM, QD
     Route: 048
     Dates: start: 20170228
  25. COLD CREAM NATUREL [Concomitant]
     Indication: Skin disorder prophylaxis
     Dosage: UNK
     Route: 061
     Dates: start: 201705
  26. NEBIVOLOL [Concomitant]
     Active Substance: NEBIVOLOL
     Indication: Blood pressure increased
     Dosage: 5 MILLIGRAM, QD
     Route: 048
  27. ENALAPRIL MALEATE\LERCANIDIPINE HYDROCHLORIDE [Concomitant]
     Active Substance: ENALAPRIL MALEATE\LERCANIDIPINE HYDROCHLORIDE
     Indication: Blood pressure increased
     Dosage: 1 DOSAGE FORM, QD
     Route: 048
  28. LEVOCARNITINE [Concomitant]
     Active Substance: LEVOCARNITINE
     Indication: Prophylaxis
     Dosage: 3 GRAM, QD
     Route: 048
     Dates: start: 201802
  29. HEPARIN [Concomitant]
     Active Substance: HEPARIN SODIUM
     Indication: Thrombosis
     Dosage: UNK
     Route: 042
     Dates: start: 201802
  30. INSULIN NOS [Concomitant]
     Active Substance: INSULIN NOS
     Indication: Diabetes mellitus
     Dosage: UNK
     Route: 042
     Dates: start: 201802

REACTIONS (2)
  - Spinal cord ischaemia [Recovered/Resolved]
  - Paraplegia [Recovered/Resolved]

NARRATIVE: CASE EVENT DATE: 20180328
